FAERS Safety Report 21619562 (Version 1)
Quarter: 2022Q4

REPORT INFORMATION
  Report Type: Spontaneous
  Country: US (occurrence: US)
  Receive Date: 20221121
  Receipt Date: 20221121
  Transmission Date: 20230112
  Serious: Yes (Hospitalization, Other)
  Sender: FDA-Public Use
  Company Number: US-SANOFI-01368179

PATIENT
  Age: 77 Year
  Sex: Female

DRUGS (1)
  1. DUPIXENT [Suspect]
     Active Substance: DUPILUMAB
     Dosage: UNK

REACTIONS (6)
  - Mental status changes [Unknown]
  - Confusional state [Unknown]
  - Eosinophilic myocarditis [Unknown]
  - Hypereosinophilic syndrome [Unknown]
  - Cerebral microinfarction [Unknown]
  - Eosinophil count increased [Unknown]
